FAERS Safety Report 24817434 (Version 3)
Quarter: 2025Q4

REPORT INFORMATION
  Report Type: Report from Study
  Country: CA (occurrence: CA)
  Receive Date: 20250108
  Receipt Date: 20251125
  Transmission Date: 20260117
  Serious: Yes (Other)
  Sender: TAKEDA
  Company Number: CA-TAKEDA-2024TUS049695

PATIENT
  Age: 55 Year
  Sex: Male

DRUGS (2)
  1. VEDOLIZUMAB [Suspect]
     Active Substance: VEDOLIZUMAB
     Indication: Crohn^s disease
     Dosage: 300 MILLIGRAM
  2. VEDOLIZUMAB [Suspect]
     Active Substance: VEDOLIZUMAB
     Dosage: 300 MILLIGRAM, Q4WEEKS
     Dates: start: 20220819

REACTIONS (7)
  - Uveitis [Unknown]
  - Infected fistula [Unknown]
  - Diarrhoea [Unknown]
  - Anal fistula [Unknown]
  - Iritis [Unknown]
  - Malaise [Unknown]
  - Drug effect less than expected [Unknown]
